FAERS Safety Report 19240436 (Version 1)
Quarter: 2021Q2

REPORT INFORMATION
  Report Type: Spontaneous
  Country: US (occurrence: US)
  Receive Date: 20210511
  Receipt Date: 20210511
  Transmission Date: 20210717
  Serious: Yes (Life-Threatening, Hospitalization, Other)
  Sender: FDA-Public Use
  Company Number: US-DENTSPLY-2021SCDP000135

PATIENT
  Age: 53 Year
  Sex: Male

DRUGS (2)
  1. LIDOCAINE. [Suspect]
     Active Substance: LIDOCAINE
     Indication: ARTHRALGIA
     Dosage: UNK TOPICAL CREAM
     Route: 061
  2. TYLENOL [Concomitant]
     Active Substance: ACETAMINOPHEN
     Indication: PYREXIA
     Dosage: UNK

REACTIONS (4)
  - Methaemoglobinaemia [None]
  - Transaminases increased [None]
  - Respiratory failure [None]
  - Atrioventricular block complete [Recovered/Resolved]
